FAERS Safety Report 16654141 (Version 4)
Quarter: 2020Q2

REPORT INFORMATION
  Report Type: Report from Study
  Country: US (occurrence: US)
  Receive Date: 20190731
  Receipt Date: 20200515
  Transmission Date: 20200713
  Serious: Yes (Other)
  Sender: FDA-Public Use
  Company Number: US-SA-2019SA204642

PATIENT
  Age: 53 Year
  Sex: Female
  Weight: 56.6 kg

DRUGS (3)
  1. CLONAZEPAM. [Concomitant]
     Active Substance: CLONAZEPAM
     Indication: ANXIETY
     Dosage: UNK
  2. BACLOFEN. [Concomitant]
     Active Substance: BACLOFEN
     Indication: MUSCLE SPASMS
     Dosage: UNK
  3. TERIFLUNOMIDE. [Suspect]
     Active Substance: TERIFLUNOMIDE
     Indication: MULTIPLE SCLEROSIS
     Dosage: 14 MG, QD
     Route: 048
     Dates: start: 201805

REACTIONS (13)
  - Paralysis [Unknown]
  - Depressed mood [Unknown]
  - Pain [Not Recovered/Not Resolved]
  - Bladder disorder [Unknown]
  - Paraesthesia [Unknown]
  - Multiple sclerosis [Not Recovered/Not Resolved]
  - Depression [Unknown]
  - Gastrointestinal disorder [Unknown]
  - Fatigue [Unknown]
  - Peroneal nerve palsy [Not Recovered/Not Resolved]
  - Decreased interest [Unknown]
  - Multiple sclerosis [Unknown]
  - Malaise [Unknown]
